FAERS Safety Report 24068137 (Version 1)
Quarter: 2024Q3

REPORT INFORMATION
  Report Type: Spontaneous
  Country: US (occurrence: None)
  Receive Date: 20240710
  Receipt Date: 20240710
  Transmission Date: 20241017
  Serious: No
  Sender: ASTRAZENECA
  Company Number: 2024A152352

PATIENT
  Sex: Male

DRUGS (1)
  1. BUDESONIDE\FORMOTEROL [Suspect]
     Active Substance: BUDESONIDE\FORMOTEROL
     Dosage: 160 UG, TWO TIMES A DAY
     Route: 055
     Dates: start: 2020

REACTIONS (7)
  - Dyspnoea [Unknown]
  - Dysphonia [Unknown]
  - Snoring [Unknown]
  - Drug ineffective [Unknown]
  - Product dose omission issue [Unknown]
  - Product use issue [Unknown]
  - Wrong technique in device usage process [Unknown]
